FAERS Safety Report 10540903 (Version 1)
Quarter: 2014Q4

REPORT INFORMATION
  Report Type: Spontaneous
  Country: US (occurrence: None)
  Receive Date: 20141023
  Receipt Date: 20141023
  Transmission Date: 20150529
  Serious: Yes (Other)
  Sender: FDA-Public Use
  Company Number: None

PATIENT
  Age: 73 Year
  Sex: Male
  Weight: 81.65 kg

DRUGS (1)
  1. METHYLPREDNISOLONE 4MG DOSEPK JUBILANT CADISTA PHARMACEUTICALS [Suspect]
     Active Substance: METHYLPREDNISOLONE
     Indication: EAR INFECTION
     Dosage: 21 TABLETS?6 ON DAY1, ONE LES ?TAKEN BY MOUTH
     Route: 048

REACTIONS (2)
  - Pruritus generalised [None]
  - Rash generalised [None]

NARRATIVE: CASE EVENT DATE: 20141021
